FAERS Safety Report 13343511 (Version 1)
Quarter: 2017Q1

REPORT INFORMATION
  Report Type: Report from Study
  Country: US (occurrence: US)
  Receive Date: 20170316
  Receipt Date: 20170316
  Transmission Date: 20170428
  Serious: Yes (Disabling, Other)
  Sender: FDA-Public Use
  Company Number: US-009507513-1703USA004883

PATIENT
  Age: 6 Decade
  Sex: Male

DRUGS (2)
  1. ZOCOR [Suspect]
     Active Substance: SIMVASTATIN
     Dosage: 20 MG, UNK
     Route: 048
  2. ZOCOR [Suspect]
     Active Substance: SIMVASTATIN
     Dosage: 40 MG, UNK
     Route: 048

REACTIONS (4)
  - Neuropathy peripheral [Recovering/Resolving]
  - Fatigue [Recovering/Resolving]
  - Mitochondrial myopathy [Recovering/Resolving]
  - Exercise tolerance decreased [Not Recovered/Not Resolved]
